FAERS Safety Report 7393779-0 (Version None)
Quarter: 2011Q2

REPORT INFORMATION
  Report Type: 
  Country: None (occurrence: None)
  Receive Date: 20110405
  Receipt Date: 20110324
  Transmission Date: 20111010
  Serious: Yes (Hospitalization, Disabling)
  Sender: FDA-Public Use
  Company Number: FR-SANOFI-AVENTIS-2011SA018612

PATIENT
  Age: 49 Year
  Sex: Male

DRUGS (7)
  1. FORTZAAR [Concomitant]
     Route: 065
  2. PROFENID [Suspect]
     Indication: RHEUMATOID ARTHRITIS
     Route: 048
     Dates: start: 19900101
  3. SALAZOPYRINE [Suspect]
     Indication: RHEUMATOID ARTHRITIS
     Route: 048
     Dates: start: 20050101
  4. NEBIVOLOL [Concomitant]
     Route: 065
  5. ARAVA [Suspect]
     Indication: RHEUMATOID ARTHRITIS
     Route: 048
     Dates: start: 20060101, end: 20110201
  6. IPERTEN [Concomitant]
     Route: 065
  7. TAHOR [Concomitant]
     Route: 065

REACTIONS (1)
  - RENAL FAILURE CHRONIC [None]
